FAERS Safety Report 4466154-6 (Version None)
Quarter: 2004Q3

REPORT INFORMATION
  Report Type: 
  Country: None (occurrence: None)
  Receive Date: 20040930
  Receipt Date: 20040917
  Transmission Date: 20050211
  Serious: Yes (Other)
  Sender: FDA-Public Use
  Company Number: 2004234443NL

PATIENT
  Age: 77 Year
  Sex: Female
  Weight: 50 kg

DRUGS (2)
  1. CELEBREX [Suspect]
     Indication: OSTEOARTHRITIS
     Dosage: 100 MG, QD, ORAL
     Route: 048
     Dates: start: 20040622, end: 20040624
  2. ASCAL (ACETYLSALICYLATE CALCIUM) [Concomitant]

REACTIONS (2)
  - CONFUSIONAL STATE [None]
  - EUPHORIC MOOD [None]
